FAERS Safety Report 7544451-5 (Version None)
Quarter: 2011Q2

REPORT INFORMATION
  Report Type: 
  Country: None (occurrence: None)
  Receive Date: 20110613
  Receipt Date: 20090305
  Transmission Date: 20111010
  Serious: Yes (Death, Life-Threatening, Other)
  Sender: FDA-Public Use
  Company Number: PHHY2008JP25384

PATIENT
  Sex: Male
  Weight: 35 kg

DRUGS (3)
  1. EXJADE [Suspect]
     Indication: MYELODYSPLASTIC SYNDROME
  2. EXJADE [Suspect]
     Indication: IRON OVERLOAD
     Dosage: 625 MG/DAY
     Route: 048
     Dates: start: 20080725, end: 20080807
  3. PRIMOBOLAN [Concomitant]
     Indication: MYELODYSPLASTIC SYNDROME
     Dosage: 15 MG/DAY
     Route: 048
     Dates: start: 20030610, end: 20080801

REACTIONS (3)
  - SERUM FERRITIN INCREASED [None]
  - ASTHENIA [None]
  - PNEUMONIA [None]
